FAERS Safety Report 25507293 (Version 1)
Quarter: 2025Q3

REPORT INFORMATION
  Report Type: Spontaneous
  Country: EU (occurrence: EU)
  Receive Date: 20250703
  Receipt Date: 20250703
  Transmission Date: 20251021
  Serious: Yes (Life-Threatening, Hospitalization)
  Sender: CHEPLAPHARM
  Company Number: None

PATIENT
  Age: 26 Year
  Sex: Male

DRUGS (16)
  1. OLANZAPINE [Interacting]
     Active Substance: OLANZAPINE
     Indication: Suicide attempt
     Dosage: DAILY DOSE: 10 MILLIGRAM
     Route: 048
     Dates: start: 20241201, end: 20250317
  2. OLANZAPINE [Interacting]
     Active Substance: OLANZAPINE
     Indication: Mixed anxiety and depressive disorder
     Dosage: DAILY DOSE: 10 MILLIGRAM
     Route: 048
     Dates: start: 20241201, end: 20250317
  3. OLANZAPINE [Interacting]
     Active Substance: OLANZAPINE
     Indication: Suicide attempt
     Route: 048
     Dates: start: 20250120
  4. OLANZAPINE [Interacting]
     Active Substance: OLANZAPINE
     Indication: Mixed anxiety and depressive disorder
     Route: 048
     Dates: start: 20250120
  5. OLANZAPINE [Interacting]
     Active Substance: OLANZAPINE
     Indication: Suicide attempt
     Route: 048
     Dates: start: 20250318, end: 20250318
  6. OLANZAPINE [Interacting]
     Active Substance: OLANZAPINE
     Indication: Mixed anxiety and depressive disorder
     Route: 048
     Dates: start: 20250318, end: 20250318
  7. CLONAZEPAM [Interacting]
     Active Substance: CLONAZEPAM
     Indication: Mixed anxiety and depressive disorder
     Route: 048
     Dates: start: 20250107, end: 20250317
  8. CLONAZEPAM [Interacting]
     Active Substance: CLONAZEPAM
     Indication: Suicide attempt
     Route: 048
     Dates: start: 20250107, end: 20250317
  9. CLONAZEPAM [Interacting]
     Active Substance: CLONAZEPAM
     Indication: Mixed anxiety and depressive disorder
     Route: 048
     Dates: start: 20250318, end: 20250318
  10. CLONAZEPAM [Interacting]
     Active Substance: CLONAZEPAM
     Indication: Suicide attempt
     Route: 048
     Dates: start: 20250318, end: 20250318
  11. QUETIAPINE [Suspect]
     Active Substance: QUETIAPINE
     Dates: start: 20241204
  12. ESCITALOPRAM [Suspect]
     Active Substance: ESCITALOPRAM OXALATE
     Dosage: DAILY DOSE: 15 MILLIGRAM
     Route: 048
     Dates: start: 20241201, end: 20250317
  13. ESCITALOPRAM [Suspect]
     Active Substance: ESCITALOPRAM OXALATE
     Dates: start: 20241204
  14. LORAZEPAM [Suspect]
     Active Substance: LORAZEPAM
     Dates: start: 20241204
  15. LAMOTRIGINE [Suspect]
     Active Substance: LAMOTRIGINE
     Dosage: DAILY DOSE: 100 MILLIGRAM
     Route: 048
     Dates: start: 202309, end: 20250317
  16. LAMOTRIGINE [Suspect]
     Active Substance: LAMOTRIGINE
     Route: 048
     Dates: start: 20250120

REACTIONS (9)
  - Intentional overdose [Recovered/Resolved]
  - Intentional overdose [Recovered/Resolved]
  - Depressed level of consciousness [Recovered/Resolved]
  - Overdose [Recovered/Resolved]
  - Respiratory depression [Unknown]
  - Pyrexia [Unknown]
  - Pneumonia [Recovering/Resolving]
  - Staphylococcal infection [Unknown]
  - Off label use [Recovered/Resolved]

NARRATIVE: CASE EVENT DATE: 20241204
